FAERS Safety Report 5270802-0 (Version None)
Quarter: 2007Q1

REPORT INFORMATION
  Report Type: 
  Country: None (occurrence: None)
  Receive Date: 20070319
  Receipt Date: 20070319
  Transmission Date: 20070707
  Serious: Yes (Other)
  Sender: FDA-Public Use
  Company Number: None

PATIENT
  Age: 39 Year
  Sex: Female
  Weight: 68.0396 kg

DRUGS (2)
  1. LEVOXYL [Suspect]
     Indication: THYROIDECTOMY
     Dosage: .100 MCG  ONCE DAILY  PO
     Route: 048
     Dates: start: 20061108, end: 20061224
  2. LEVOXYL [Suspect]
     Dosage: .125 MCG   ONCE DAILY   PO
     Route: 048
     Dates: start: 20061225, end: 20070301

REACTIONS (9)
  - ADVERSE DRUG REACTION [None]
  - DRUG DISPENSING ERROR [None]
  - DRUG INEFFECTIVE [None]
  - DYSPNOEA [None]
  - ERYTHEMA [None]
  - HEART RATE INCREASED [None]
  - HEART RATE IRREGULAR [None]
  - INSOMNIA [None]
  - URTICARIA GENERALISED [None]
